FAERS Safety Report 16082380 (Version 1)
Quarter: 2019Q1

REPORT INFORMATION
  Report Type: Report from Study
  Country: BR (occurrence: BR)
  Receive Date: 20190318
  Receipt Date: 20190318
  Transmission Date: 20190418
  Serious: Yes (Hospitalization)
  Sender: FDA-Public Use
  Company Number: BR-ROCHE-698514

PATIENT
  Age: 39 Year
  Sex: Female
  Weight: 62 kg

DRUGS (9)
  1. OMEPRAZOLE. [Concomitant]
     Active Substance: OMEPRAZOLE
     Route: 065
  2. DOCETAXEL. [Suspect]
     Active Substance: DOCETAXEL
     Indication: HER-2 POSITIVE BREAST CANCER
     Dosage: FREQUENCY- 21/21 DAYS.LAST DOSE PRIOR TO SAE: 11 MARCH 2010.
     Route: 042
     Dates: start: 20090306, end: 20100312
  3. OMEPRAZOLE. [Concomitant]
     Active Substance: OMEPRAZOLE
     Route: 065
     Dates: start: 20100415, end: 20100419
  4. TRASTUZUMAB. [Suspect]
     Active Substance: TRASTUZUMAB
     Dosage: MAINTENANCE DOSE : 6 MG/KG
     Route: 042
  5. TRASTUZUMAB. [Suspect]
     Active Substance: TRASTUZUMAB
     Indication: HER-2 POSITIVE BREAST CANCER
     Dosage: LOADING DOSE: 8 MG/KG
     Route: 042
  6. DIPYRONE [Concomitant]
     Active Substance: DIPYRONE
     Dosage: TOTAL DAILY DOSE: 1 VIAL.
     Route: 065
     Dates: start: 20100418, end: 20100418
  7. PERTUZUMAB. [Suspect]
     Active Substance: PERTUZUMAB
     Indication: HER-2 POSITIVE BREAST CANCER
     Dosage: FREQUENCY- 21/21 DAYS, DRUG FORM TAKEN FROM PROTOCOL. LAST DOSE PRIOR TO SAE: 11 MARCH 2010.
     Route: 042
  8. PERTUZUMAB. [Suspect]
     Active Substance: PERTUZUMAB
     Dosage: FREQUENCY- 21/21 DAYS, DRUG FORM TAKEN FROM PROTOCOL. LAST DOSE PRIOR TO SAE: 11 MARCH 2010.
     Route: 042
  9. ANASTROZOLE. [Concomitant]
     Active Substance: ANASTROZOLE
     Dosage: TDD: 1 CAPSULE
     Route: 065

REACTIONS (1)
  - Left ventricular dysfunction [Recovered/Resolved]

NARRATIVE: CASE EVENT DATE: 20100326
